FAERS Safety Report 5850801-8 (Version None)
Quarter: 2008Q3

REPORT INFORMATION
  Report Type: 
  Country: None (occurrence: None)
  Receive Date: 20080820
  Receipt Date: 20080811
  Transmission Date: 20090109
  Serious: Yes (Life-Threatening, Hospitalization)
  Sender: FDA-Public Use
  Company Number: FR-JNJFOC-20080802175

PATIENT
  Age: 72 Year
  Sex: Male

DRUGS (21)
  1. OFLOCET [Suspect]
     Indication: INTERVERTEBRAL DISCITIS
     Route: 048
  2. ZYLORIC [Suspect]
     Indication: DRUG USE FOR UNKNOWN INDICATION
     Route: 048
  3. DIAMICRON [Suspect]
     Indication: DRUG USE FOR UNKNOWN INDICATION
     Route: 048
  4. ROCEPHIN [Suspect]
     Indication: INTERVERTEBRAL DISCITIS
     Route: 042
  5. LERCAN [Suspect]
     Indication: DRUG USE FOR UNKNOWN INDICATION
     Route: 048
  6. IMOVANE [Concomitant]
     Route: 065
  7. FORLAX [Concomitant]
  8. DESLORATADINE [Concomitant]
  9. XALATAN [Concomitant]
     Route: 047
  10. AZOPT [Concomitant]
     Route: 047
  11. CALCIPARINE [Concomitant]
     Indication: PROPHYLAXIS
     Route: 042
  12. LOXEN [Concomitant]
     Route: 048
  13. COVERSYL [Concomitant]
     Route: 048
  14. ALTIZIDE [Concomitant]
     Dosage: 0.5 U
     Route: 048
  15. FENOFIBRATE [Concomitant]
     Route: 048
  16. MOPRAL [Concomitant]
     Route: 048
  17. METFORMIN HCL [Concomitant]
     Route: 048
  18. NABUMETONE [Concomitant]
     Dosage: DOSE: 1 U
  19. GENTAMICIN [Concomitant]
     Indication: INTERVERTEBRAL DISCITIS
     Route: 065
  20. TRIFLUCAN [Concomitant]
     Indication: ORAL CANDIDIASIS
     Route: 065
  21. HUMAN INSULIN [Concomitant]
     Indication: DIABETES MELLITUS

REACTIONS (1)
  - DRUG RASH WITH EOSINOPHILIA AND SYSTEMIC SYMPTOMS [None]
